FAERS Safety Report 4491319-7 (Version None)
Quarter: 2004Q4

REPORT INFORMATION
  Report Type: 
  Country: None (occurrence: None)
  Receive Date: 20041101
  Receipt Date: 20041101
  Transmission Date: 20050328
  Serious: No
  Sender: FDA-Public Use
  Company Number: None

PATIENT
  Age: 62 Year
  Sex: Female
  Weight: 80.3 kg

DRUGS (1)
  1. MOXIFLOXACIN [Suspect]
     Dosage: 400 MG   INTRAVENOU
     Route: 042
     Dates: start: 20040815, end: 20040816

REACTIONS (1)
  - ELECTROCARDIOGRAM QT CORRECTED INTERVAL PROLONGED [None]
